FAERS Safety Report 13595796 (Version 1)
Quarter: 2017Q2

REPORT INFORMATION
  Report Type: Spontaneous
  Country: US (occurrence: US)
  Receive Date: 20170531
  Receipt Date: 20170531
  Transmission Date: 20170830
  Serious: No
  Sender: FDA-Public Use
  Company Number: US-JNJFOC-20170227513

PATIENT
  Sex: Male

DRUGS (1)
  1. TYLENOL EXTRA STRENGTH [Suspect]
     Active Substance: ACETAMINOPHEN
     Indication: PAIN
     Dosage: 9 TABLETS IN ONE DAY BETWEEN 11 AM AND 11 PM
     Route: 048
     Dates: start: 20170226

REACTIONS (4)
  - Asthenia [Recovering/Resolving]
  - Headache [Recovering/Resolving]
  - Musculoskeletal pain [Recovering/Resolving]
  - Overdose [Unknown]

NARRATIVE: CASE EVENT DATE: 201702
